FAERS Safety Report 7017997-6 (Version None)
Quarter: 2010Q3

REPORT INFORMATION
  Report Type: 
  Country: None (occurrence: None)
  Receive Date: 20100928
  Receipt Date: 20100915
  Transmission Date: 20110219
  Serious: Yes (Other)
  Sender: FDA-Public Use
  Company Number: PHHY2010GR10520

PATIENT
  Age: 71 Year
  Sex: Male
  Weight: 70 kg

DRUGS (5)
  1. ACLASTA [Suspect]
     Indication: OSTEOPOROSIS
     Dosage: 5 MG, 1 INJECTION PER YEAR (MG UNSPESIFIED)
     Route: 042
     Dates: start: 20100218
  2. ANTIHYPERTENSIVE DRUGS [Concomitant]
  3. ACTOS [Concomitant]
     Indication: DIABETES MELLITUS
     Dosage: 15 MG PERORAL
     Route: 048
  4. COZAAR [Concomitant]
     Indication: HYPERTENSION
     Dosage: 50 MG
     Route: 048
  5. IMOTECH [Concomitant]
     Indication: CHRONIC OBSTRUCTIVE PULMONARY DISEASE

REACTIONS (7)
  - BLEPHARITIS [None]
  - BONE PAIN [None]
  - EYE INFLAMMATION [None]
  - EYE OEDEMA [None]
  - HAEMATOMA [None]
  - MYALGIA [None]
  - PYREXIA [None]
